FAERS Safety Report 13149117 (Version 1)
Quarter: 2017Q1

REPORT INFORMATION
  Report Type: Not Available
  Country: None (occurrence: US)
  Receive Date: 20170125
  Receipt Date: 20170125
  Transmission Date: 20170428
  Serious: No
  Sender: FDA-Public Use
  Company Number: US-AKORN-48034

PATIENT
  Sex: Female

DRUGS (1)
  1. TOBRAMYCIN OPHTHALMIC SOLUTION, USP [Suspect]
     Active Substance: TOBRAMYCIN

REACTIONS (2)
  - Eyelid ptosis [Recovered/Resolved]
  - Eye pruritus [Recovered/Resolved]

NARRATIVE: CASE EVENT DATE: 20160607
